FAERS Safety Report 18360065 (Version 2)
Quarter: 2020Q4

REPORT INFORMATION
  Report Type: Report from Study
  Country: MX (occurrence: MX)
  Receive Date: 20201008
  Receipt Date: 20201029
  Transmission Date: 20210114
  Serious: Yes (Death)
  Sender: FDA-Public Use
  Company Number: NVSC2020MX271687

PATIENT
  Age: 74 Year
  Sex: Male
  Weight: 70 kg

DRUGS (1)
  1. ENTRESTO [Suspect]
     Active Substance: SACUBITRIL\VALSARTAN
     Indication: BLOOD PRESSURE ABNORMAL
     Dosage: 1 DF, QD (START DATE REPORTED MORE THAN 4 YEARS AGO)
     Route: 048

REACTIONS (3)
  - Product use in unapproved indication [Unknown]
  - Cardiac disorder [Fatal]
  - Product prescribing error [Unknown]

NARRATIVE: CASE EVENT DATE: 20190729
